FAERS Safety Report 22326500 (Version 1)
Quarter: 2023Q2

REPORT INFORMATION
  Report Type: Spontaneous
  Country: US (occurrence: US)
  Receive Date: 20230516
  Receipt Date: 20230516
  Transmission Date: 20230722
  Serious: No
  Sender: FDA-Public Use
  Company Number: US-RADIUS HEALTH INC.-2022US004345

PATIENT
  Age: 55 Year
  Sex: Female

DRUGS (1)
  1. TYMLOS [Suspect]
     Active Substance: ABALOPARATIDE
     Indication: Senile osteoporosis
     Dosage: UNK
     Dates: start: 20220819, end: 20220902

REACTIONS (5)
  - Skin mass [Unknown]
  - Stomatitis [Unknown]
  - Alopecia [Unknown]
  - Insomnia [Unknown]
  - Back pain [Unknown]

NARRATIVE: CASE EVENT DATE: 20220819
